FAERS Safety Report 6856626-9 (Version None)
Quarter: 2010Q3

REPORT INFORMATION
  Report Type: 
  Country: None (occurrence: None)
  Receive Date: 20100719
  Receipt Date: 20100712
  Transmission Date: 20110219
  Serious: Yes (Hospitalization)
  Sender: FDA-Public Use
  Company Number: JP-ROCHE-715637

PATIENT
  Sex: Female

DRUGS (18)
  1. TOCILIZUMAB [Suspect]
     Indication: RHEUMATOID ARTHRITIS
     Route: 041
     Dates: start: 20080807, end: 20080807
  2. TOCILIZUMAB [Suspect]
     Route: 041
     Dates: start: 20080904, end: 20080904
  3. TOCILIZUMAB [Suspect]
     Route: 041
     Dates: start: 20081001, end: 20081001
  4. TOCILIZUMAB [Suspect]
     Route: 041
     Dates: start: 20081029, end: 20081029
  5. TOCILIZUMAB [Suspect]
     Route: 041
     Dates: start: 20081126, end: 20081126
  6. TOCILIZUMAB [Suspect]
     Route: 041
     Dates: start: 20081224, end: 20081224
  7. TOCILIZUMAB [Suspect]
     Route: 041
     Dates: start: 20090121
  8. PROGRAF [Concomitant]
     Route: 048
     Dates: start: 20080810
  9. METALCAPTASE [Concomitant]
     Route: 048
  10. ISCOTIN [Concomitant]
     Route: 048
     Dates: start: 20080630
  11. RIFADIN [Concomitant]
     Route: 048
     Dates: start: 20080630
  12. PREDONINE [Concomitant]
     Route: 048
  13. PYDOXAL [Concomitant]
     Route: 048
  14. TAKEPRON [Concomitant]
     Route: 048
  15. LORCAM [Concomitant]
     Route: 048
  16. PLETAL [Concomitant]
     Route: 048
  17. BONALON [Concomitant]
     Route: 048
  18. VOLTAREN [Concomitant]
     Route: 054

REACTIONS (1)
  - LUNG NEOPLASM MALIGNANT [None]
